FAERS Safety Report 6559190-7 (Version None)
Quarter: 2010Q1

REPORT INFORMATION
  Report Type: 
  Country: None (occurrence: None)
  Receive Date: 20100129
  Receipt Date: 20090909
  Transmission Date: 20100710
  Serious: Yes (Other)
  Sender: FDA-Public Use
  Company Number: US-ABBOTT-09P-163-0578846-00

PATIENT
  Sex: Female
  Weight: 72.64 kg

DRUGS (4)
  1. HUMIRA [Suspect]
     Indication: CROHN'S DISEASE
     Route: 058
     Dates: start: 20080115, end: 20090501
  2. IMURAN [Suspect]
     Indication: ARTHRALGIA
     Dates: start: 20080101, end: 20090501
  3. VITAMIN B-12 [Concomitant]
     Indication: CROHN'S DISEASE
  4. VITAMIN D [Concomitant]
     Indication: VITAMIN SUPPLEMENTATION
     Route: 048

REACTIONS (7)
  - ARTHRALGIA [None]
  - BLOOD CREATININE INCREASED [None]
  - DRUG INEFFECTIVE [None]
  - JOINT SWELLING [None]
  - OEDEMA PERIPHERAL [None]
  - RHEUMATOID ARTHRITIS [None]
  - SYSTEMIC LUPUS ERYTHEMATOSUS [None]
